FAERS Safety Report 4825141-6 (Version None)
Quarter: 2005Q4

REPORT INFORMATION
  Report Type: 
  Country: None (occurrence: None)
  Receive Date: 20051109
  Receipt Date: 20051109
  Transmission Date: 20060501
  Serious: Yes (Life-Threatening)
  Sender: FDA-Public Use
  Company Number: None

PATIENT
  Age: 89 Year
  Sex: Male
  Weight: 58.9676 kg

DRUGS (1)
  1. BIAXIN XL [Suspect]
     Dosage: 500 MG , 2 TABLETS ONCE A DAY
     Dates: start: 20050630

REACTIONS (3)
  - DYSPNOEA [None]
  - FOREIGN BODY TRAUMA [None]
  - PHARMACEUTICAL PRODUCT COMPLAINT [None]
